FAERS Safety Report 23742181 (Version 4)
Quarter: 2024Q3

REPORT INFORMATION
  Report Type: Other
  Country: CA (occurrence: CA)
  Receive Date: 20240415
  Receipt Date: 20240723
  Transmission Date: 20241017
  Serious: Yes (Death, Other)
  Sender: APOTEX
  Company Number: CA-APOTEX-2024AP004507

PATIENT

DRUGS (1)
  1. DASATINIB [Suspect]
     Active Substance: DASATINIB
     Indication: Chronic myeloid leukaemia
     Dosage: 70 MILLIGRAM, QD, ONCE A DAY 1 XDAILY
     Route: 048
     Dates: start: 20230428

REACTIONS (4)
  - Acute lymphocytic leukaemia [Fatal]
  - Disease progression [Fatal]
  - Blast crisis in myelogenous leukaemia [Fatal]
  - Philadelphia positive acute lymphocytic leukaemia [Fatal]
